FAERS Safety Report 6885960-1 (Version None)
Quarter: 2010Q3

REPORT INFORMATION
  Report Type: 
  Country: None (occurrence: None)
  Receive Date: 20100729
  Receipt Date: 20090101
  Transmission Date: 20110219
  Serious: No
  Sender: FDA-Public Use
  Company Number: US-PFIZER INC-2009150258

PATIENT
  Age: 52 Year
  Sex: Male

DRUGS (7)
  1. CELEBREX [Suspect]
     Indication: ARTHROPATHY
  2. CELEBREX [Suspect]
     Indication: ILL-DEFINED DISORDER
  3. PREVACID [Concomitant]
     Dosage: UNK
  4. LUNESTA [Concomitant]
     Dosage: UNK
  5. ORLISTAT [Concomitant]
     Dosage: UNK
  6. FELODIPINE [Concomitant]
     Dosage: UNK
  7. ALPRAZOLAM [Concomitant]
     Dosage: UNK

REACTIONS (2)
  - DIARRHOEA [None]
  - NAUSEA [None]
